FAERS Safety Report 7051292-4 (Version None)
Quarter: 2010Q4

REPORT INFORMATION
  Report Type: 
  Country: None (occurrence: None)
  Receive Date: 20101018
  Receipt Date: 20101018
  Transmission Date: 20110411
  Serious: Yes (Hospitalization)
  Sender: FDA-Public Use
  Company Number: None

PATIENT
  Age: 21 Year
  Sex: Female
  Weight: 83.9154 kg

DRUGS (2)
  1. YASMIN [Suspect]
     Indication: POLYCYSTIC OVARIES
     Dosage: 1 TABLET DAILY ORAL
     Route: 048
     Dates: start: 20030101, end: 20060701
  2. YAZ [Suspect]
     Indication: POLYCYSTIC OVARIES
     Dosage: 1 TABLET DAILY ORAL
     Route: 048
     Dates: start: 20060701, end: 20100601

REACTIONS (2)
  - DEEP VEIN THROMBOSIS [None]
  - VENOUS STENT INSERTION [None]
